FAERS Safety Report 22346419 (Version 2)
Quarter: 2023Q2

REPORT INFORMATION
  Report Type: Spontaneous
  Country: US (occurrence: US)
  Receive Date: 20230519
  Receipt Date: 20230526
  Transmission Date: 20230721
  Serious: Yes (Other)
  Sender: FDA-Public Use
  Company Number: US-MYLANLABS-2022M1113457

PATIENT
  Sex: Male
  Weight: 6 kg

DRUGS (6)
  1. HYDROCORTISONE [Suspect]
     Active Substance: HYDROCORTISONE
     Indication: Product used for unknown indication
     Dosage: STRESS DOSE STEROIDS
     Route: 065
  2. VECURONIUM [Suspect]
     Active Substance: VECURONIUM BROMIDE
     Indication: Movement disorder
     Dosage: 1 MCG/KG/MIN
     Route: 051
  3. VECURONIUM [Suspect]
     Active Substance: VECURONIUM BROMIDE
     Indication: Mechanical ventilation complication
     Dosage: TITRATED UP TO 5 MCG/KG/MIN (0.3 MG/KG/HR) OVER THE FIRST 27 HOURS, TOTAL DURATION:10 DAYS
     Route: 051
  4. EPINEPHRINE [Concomitant]
     Active Substance: EPINEPHRINE
     Indication: Bradycardia
     Dosage: 3 DOSES
  5. FENTANYL [Concomitant]
     Active Substance: FENTANYL
     Indication: Analgesic therapy
     Dosage: CONTINUOUS
  6. FENTANYL [Concomitant]
     Active Substance: FENTANYL
     Indication: Sedation
     Dosage: TITRATED UP TO 2 MCG/KG

REACTIONS (1)
  - Neuromuscular block prolonged [Recovered/Resolved]
